FAERS Safety Report 10116828 (Version 2)
Quarter: 2015Q1

REPORT INFORMATION
  Report Type: Other
  Country: US (occurrence: US)
  Receive Date: 20140426
  Receipt Date: 20150221
  Transmission Date: 20150720
  Serious: Yes (Hospitalization, Other)
  Sender: FDA-Public Use
  Company Number: US-GSKPPD-2014GSK020024

PATIENT
  Age: 62 Year
  Sex: Male

DRUGS (7)
  1. METOPROLOL [Concomitant]
     Active Substance: METOPROLOL
  2. AVANDIA [Suspect]
     Active Substance: ROSIGLITAZONE MALEATE
     Indication: DIABETES MELLITUS
     Dosage: AVANDIA WAS NOT LISTED AMONG THE PATIENTS RECORDS REVIEWED.
     Route: 048
  3. PLAVIX [Concomitant]
     Active Substance: CLOPIDOGREL BISULFATE
  4. AMIODARONE [Concomitant]
     Active Substance: AMIODARONE
  5. ASPIRIN. [Concomitant]
     Active Substance: ASPIRIN
  6. NITRO STAT [Concomitant]
  7. DIOVAN [Concomitant]
     Active Substance: VALSARTAN
     Dosage: 100/25 MG

REACTIONS (2)
  - Myocardial infarction [Unknown]
  - Angina pectoris [Recovered/Resolved]

NARRATIVE: CASE EVENT DATE: 20081202
